FAERS Safety Report 6611884-0 (Version None)
Quarter: 2010Q1

REPORT INFORMATION
  Report Type: 
  Country: None (occurrence: None)
  Receive Date: 20100303
  Receipt Date: 20100225
  Transmission Date: 20100710
  Serious: Yes (Other)
  Sender: FDA-Public Use
  Company Number: US-RB-022845-09

PATIENT
  Age: 28 Year
  Sex: Female

DRUGS (3)
  1. SUBOXONE [Suspect]
     Dosage: TAKES 16 MG TO 20 MG DAILY
     Route: 060
     Dates: start: 20091013
  2. XANAX [Concomitant]
     Indication: ANXIETY
     Dosage: DOSING INFORMATION UNKNOWN
     Route: 065
  3. TRAZODONE HCL [Concomitant]
     Indication: SLEEP DISORDER
     Dosage: DOSING INFORMATION UNKNOWN
     Route: 065

REACTIONS (13)
  - ABDOMINAL PAIN [None]
  - ASTHENIA [None]
  - CONSTIPATION [None]
  - DIZZINESS [None]
  - GAIT DISTURBANCE [None]
  - KIDNEY INFECTION [None]
  - MIGRAINE [None]
  - SLEEP TALKING [None]
  - SOMNOLENCE [None]
  - SYNCOPE [None]
  - URINARY TRACT INFECTION [None]
  - VISUAL IMPAIRMENT [None]
  - VOMITING [None]
